FAERS Safety Report 18973898 (Version 1)
Quarter: 2021Q1

REPORT INFORMATION
  Report Type: Spontaneous
  Country: US (occurrence: US)
  Receive Date: 20210305
  Receipt Date: 20210305
  Transmission Date: 20210420
  Serious: No
  Sender: FDA-Public Use
  Company Number: US-ASTRAZENECA-2021A045874

PATIENT
  Age: 3709 Week
  Sex: Female

DRUGS (1)
  1. BUDESONIDE AND FORMOTEROL FUMARATE [Suspect]
     Active Substance: BUDESONIDE\FORMOTEROL FUMARATE
     Indication: ASTHMA
     Dosage: 1 PUFF IN MORNING AND 1 AT NIGHT
     Route: 055

REACTIONS (5)
  - Product dose omission issue [Unknown]
  - Product use issue [Unknown]
  - Product packaging quantity issue [Unknown]
  - Dyspnoea [Unknown]
  - Device defective [Unknown]

NARRATIVE: CASE EVENT DATE: 20210204
